FAERS Safety Report 7927531-1 (Version None)
Quarter: 2011Q4

REPORT INFORMATION
  Report Type: 
  Country: None (occurrence: None)
  Receive Date: 20111118
  Receipt Date: 20110817
  Transmission Date: 20120403
  Serious: No
  Sender: FDA-Public Use
  Company Number: US-BAYER-2011-078889

PATIENT

DRUGS (1)
  1. ALEVE (CAPLET) [Suspect]
     Indication: MUSCLE SPASMS
     Dosage: 4 DF, ONCE
     Dates: start: 20110816

REACTIONS (1)
  - MUSCLE SPASMS [None]
